FAERS Safety Report 12260848 (Version 1)
Quarter: 2016Q2

REPORT INFORMATION
  Report Type: Spontaneous
  Country: US (occurrence: None)
  Receive Date: 20160412
  Receipt Date: 20160412
  Transmission Date: 20160815
  Serious: Yes (Death)
  Sender: FDA-Public Use
  Company Number: None

PATIENT
  Age: 77 Year
  Sex: Female
  Weight: 66 kg

DRUGS (2)
  1. CLOPIDOGREL, 75 MG [Suspect]
     Active Substance: CLOPIDOGREL BISULFATE
     Route: 048
  2. WARFARIN, 3 MG [Suspect]
     Active Substance: WARFARIN SODIUM
     Route: 048

REACTIONS (1)
  - Intraventricular haemorrhage [None]

NARRATIVE: CASE EVENT DATE: 20160327
